FAERS Safety Report 10012137 (Version 1)
Quarter: 2014Q1

REPORT INFORMATION
  Report Type: Spontaneous
  Country: US (occurrence: US)
  Receive Date: 20140314
  Receipt Date: 20140314
  Transmission Date: 20141002
  Serious: Yes (Hospitalization)
  Sender: FDA-Public Use
  Company Number: US-GLAXOSMITHKLINE-A1064111A

PATIENT
  Age: 60 Year
  Sex: Female

DRUGS (3)
  1. WELLBUTRIN [Suspect]
     Indication: DEPRESSION
     Dosage: 150MG TWICE PER DAY
     Route: 048
     Dates: start: 2002
  2. ATENOLOL [Concomitant]
  3. ENALAPRIL [Concomitant]

REACTIONS (15)
  - Lymphoma [Recovering/Resolving]
  - Diabetes mellitus [Recovering/Resolving]
  - Fibromyalgia [Recovering/Resolving]
  - Rash generalised [Recovering/Resolving]
  - Abasia [Recovering/Resolving]
  - Blood glucose fluctuation [Recovering/Resolving]
  - Lymphocyte count abnormal [Recovering/Resolving]
  - Tinnitus [Recovering/Resolving]
  - Diplopia [Recovering/Resolving]
  - Vision blurred [Recovering/Resolving]
  - Incoherent [Recovering/Resolving]
  - Aphasia [Recovering/Resolving]
  - Blindness [Recovering/Resolving]
  - Balance disorder [Recovering/Resolving]
  - Neutrophil count abnormal [Recovering/Resolving]
